FAERS Safety Report 6479523-X (Version None)
Quarter: 2009Q4

REPORT INFORMATION
  Report Type: 
  Country: None (occurrence: None)
  Receive Date: 20091207
  Receipt Date: 20091207
  Transmission Date: 20100525
  Serious: Yes (Other)
  Sender: FDA-Public Use
  Company Number: None

PATIENT
  Sex: Female

DRUGS (1)
  1. TRAMADOL HCL [Suspect]
     Indication: BURSITIS
     Dosage: 1-2 TS TID PO; ONE DOSING ONLY
     Route: 048

REACTIONS (6)
  - BLOOD PRESSURE INCREASED [None]
  - DISORIENTATION [None]
  - DIZZINESS [None]
  - GAIT DISTURBANCE [None]
  - HYPERVIGILANCE [None]
  - SEROTONIN SYNDROME [None]
